FAERS Safety Report 18796031 (Version 1)
Quarter: 2021Q1

REPORT INFORMATION
  Report Type: Spontaneous
  Country: US (occurrence: US)
  Receive Date: 20210127
  Receipt Date: 20210127
  Transmission Date: 20210419
  Serious: No
  Sender: FDA-Public Use
  Company Number: US-MYLANLABS-2021M1003354

PATIENT
  Sex: Male
  Weight: 109 kg

DRUGS (2)
  1. ADMELOG [Concomitant]
     Active Substance: INSULIN LISPRO
     Dosage: UNK
  2. SEMGLEE [Suspect]
     Active Substance: INSULIN GLARGINE
     Indication: DIABETES MELLITUS
     Dosage: 44 UNITS/ DAY
     Route: 058
     Dates: start: 20201226

REACTIONS (2)
  - Device issue [None]
  - Product quality issue [None]
